FAERS Safety Report 7417320-9 (Version None)
Quarter: 2011Q2

REPORT INFORMATION
  Report Type: 
  Country: None (occurrence: None)
  Receive Date: 20110415
  Receipt Date: 20110406
  Transmission Date: 20111010
  Serious: Yes (Hospitalization, Other)
  Sender: FDA-Public Use
  Company Number: US-BAYER-2011-003158

PATIENT
  Age: 54 Year
  Sex: Male

DRUGS (4)
  1. DIURETICS [Concomitant]
  2. NEXAVAR EDUCATION COMPAIGN IN US [Suspect]
     Indication: HEPATIC NEOPLASM MALIGNANT
     Dosage: 400 MG, BID
     Dates: start: 20101229, end: 20110104
  3. NEXAVAR EDUCATION COMPAIGN IN US [Suspect]
     Dosage: 400 MG, BID
     Route: 048
     Dates: start: 20110204, end: 20110226
  4. OTHER ANTIHYPERTENSIVES [Concomitant]

REACTIONS (7)
  - HAEMORRHAGE [None]
  - DRY SKIN [None]
  - ASCITES [None]
  - VARICES OESOPHAGEAL [None]
  - DIARRHOEA [None]
  - ULCER [None]
  - JOINT SWELLING [None]
